FAERS Safety Report 4634999-5 (Version None)
Quarter: 2005Q2

REPORT INFORMATION
  Report Type: 
  Country: None (occurrence: None)
  Receive Date: 20050414
  Receipt Date: 20050222
  Transmission Date: 20051028
  Serious: Yes (Life-Threatening)
  Sender: FDA-Public Use
  Company Number: 200510604JP

PATIENT
  Age: 71 Year
  Sex: Male

DRUGS (9)
  1. KETEK [Suspect]
     Indication: CHRONIC SINUSITIS
     Route: 048
     Dates: start: 20040720, end: 20050217
  2. THEO-DUR [Concomitant]
     Indication: ASTHMA
  3. HOKUNALIN [Concomitant]
  4. ASPIRIN [Concomitant]
     Indication: CEREBRAL INFARCTION
     Route: 048
  5. NIVADIL [Concomitant]
     Indication: HYPERTENSION
  6. DASEN [Concomitant]
     Indication: INFECTION
     Route: 048
     Dates: start: 20050215
  7. LOXONIN [Concomitant]
     Indication: INFECTION
     Route: 048
     Dates: start: 20050215
  8. ALLELOCK [Concomitant]
     Indication: NASAL CONGESTION
     Dates: start: 20040720
  9. DIOVAN [Concomitant]
     Indication: HYPERTENSION

REACTIONS (2)
  - HYPERSOMNIA [None]
  - LOSS OF CONSCIOUSNESS [None]
